FAERS Safety Report 6488658-7 (Version None)
Quarter: 2009Q4

REPORT INFORMATION
  Report Type: 
  Country: None (occurrence: None)
  Receive Date: 20091210
  Receipt Date: 20091130
  Transmission Date: 20100525
  Serious: Yes (Other)
  Sender: FDA-Public Use
  Company Number: CN-PFIZER INC-2009304576

PATIENT
  Age: 79 Year
  Sex: Male

DRUGS (2)
  1. FLUCONAZOLE [Suspect]
     Indication: ANTIFUNGAL TREATMENT
     Dosage: 200 MG, 1X/DAY
     Route: 042
     Dates: start: 20090101, end: 20090101
  2. TERBINAFINE [Concomitant]
     Indication: TINEA CRURIS

REACTIONS (1)
  - MENTAL DISORDER [None]
